FAERS Safety Report 9403752 (Version 1)
Quarter: 2013Q3

REPORT INFORMATION
  Report Type: Spontaneous
  Country: US (occurrence: None)
  Receive Date: 20130715
  Receipt Date: 20130715
  Transmission Date: 20140515
  Serious: Yes (Hospitalization)
  Sender: FDA-Public Use
  Company Number: None

PATIENT
  Age: 64 Year
  Sex: Female
  Weight: 56.3 kg

DRUGS (6)
  1. VELIPARIB [Suspect]
     Indication: BREAST CANCER
     Dosage: 400 MG  PO TWICE DAILY
     Route: 048
  2. VELIPARIB [Suspect]
     Indication: OVARIAN CANCER
     Dosage: 400 MG  PO TWICE DAILY
     Route: 048
  3. ONDANSETRON [Concomitant]
  4. FENTANYL PATCH [Concomitant]
  5. MS IR [Concomitant]
  6. ENOXIPARIN [Concomitant]

REACTIONS (4)
  - Abdominal pain [None]
  - Nausea [None]
  - Vomiting [None]
  - Dyspnoea [None]
